FAERS Safety Report 24672867 (Version 2)
Quarter: 2025Q2

REPORT INFORMATION
  Report Type: Spontaneous
  Country: HU (occurrence: HU)
  Receive Date: 20241128
  Receipt Date: 20250403
  Transmission Date: 20250717
  Serious: Yes (Other)
  Sender: ABBVIE
  Company Number: HU-RICHTER-2024-GR-013077

PATIENT
  Age: 29 Year
  Sex: Female

DRUGS (1)
  1. LEVONORGESTREL [Suspect]
     Active Substance: LEVONORGESTREL
     Indication: Product used for unknown indication
     Route: 015
     Dates: start: 20240320

REACTIONS (3)
  - Pregnancy with contraceptive device [Unknown]
  - Drug ineffective [Unknown]
  - Maternal exposure during pregnancy [Unknown]
